FAERS Safety Report 23973207 (Version 2)
Quarter: 2024Q2

REPORT INFORMATION
  Report Type: Spontaneous
  Country: US (occurrence: US)
  Receive Date: 20240613
  Receipt Date: 20240626
  Transmission Date: 20240715
  Serious: Yes (Hospitalization, Other)
  Sender: FDA-Public Use
  Company Number: US-DSPHARMA-2024SPA000042

PATIENT

DRUGS (7)
  1. LATUDA [Suspect]
     Active Substance: LURASIDONE HYDROCHLORIDE
     Dosage: UNK
     Route: 048
  2. DUPILUMAB [Suspect]
     Active Substance: DUPILUMAB
     Indication: Eosinophilic oesophagitis
     Dosage: 300 MG, QW
     Route: 058
     Dates: start: 20240223
  3. CYMBALTA [Suspect]
     Active Substance: DULOXETINE HYDROCHLORIDE
     Dosage: UNK
     Route: 065
  4. LIDOCAINE [Concomitant]
     Active Substance: LIDOCAINE
     Dosage: UNK
  5. BENADRYL [Concomitant]
     Active Substance: DIPHENHYDRAMINE HYDROCHLORIDE
     Dosage: UNK
  6. OMEPRAZOLE [Concomitant]
     Active Substance: DONEPEZIL HYDROCHLORIDE\OMEPRAZOLE\OMEPRAZOLE MAGNESIUM
     Indication: Eosinophilic oesophagitis
     Dosage: UNK
     Route: 065
     Dates: start: 1995
  7. OXCARBAZEPINE [Concomitant]
     Active Substance: OXCARBAZEPINE
     Dosage: UNK
     Route: 065

REACTIONS (39)
  - Choking [Unknown]
  - Gastrointestinal oedema [Unknown]
  - Carotid arteriosclerosis [Unknown]
  - Pneumonia [Unknown]
  - Irritability [Unknown]
  - Mental disorder [Unknown]
  - Condition aggravated [Unknown]
  - Memory impairment [Unknown]
  - Peripheral swelling [Unknown]
  - Low density lipoprotein abnormal [Unknown]
  - Dysphonia [Unknown]
  - Asthma [Unknown]
  - Gastrointestinal scarring [Unknown]
  - High density lipoprotein abnormal [Unknown]
  - Night sweats [Unknown]
  - Cardiac disorder [Unknown]
  - Eosinophil count increased [Unknown]
  - Feeding disorder [Unknown]
  - Asthenia [Unknown]
  - Gastrointestinal disorder [Unknown]
  - Feeling abnormal [Unknown]
  - Injection site pruritus [Unknown]
  - Injection site bruising [Unknown]
  - Injection site swelling [Unknown]
  - Injection site erythema [Unknown]
  - Retching [Unknown]
  - Fungal infection [Unknown]
  - Blood bilirubin increased [Unknown]
  - Reaction to excipient [Unknown]
  - Fatigue [Unknown]
  - Dyspnoea [Unknown]
  - Anxiety [Unknown]
  - Hypersensitivity [Unknown]
  - Weight increased [Unknown]
  - Insomnia [Unknown]
  - Tremor [Unknown]
  - Muscle spasms [Unknown]
  - Vomiting [Unknown]
  - Nausea [Unknown]

NARRATIVE: CASE EVENT DATE: 20240101
